FAERS Safety Report 8600975-0 (Version None)
Quarter: 2012Q3

REPORT INFORMATION
  Report Type: 
  Country: None (occurrence: None)
  Receive Date: 20120806
  Receipt Date: 20120723
  Transmission Date: 20120928
  Serious: Yes (Hospitalization, Other)
  Sender: FDA-Public Use
  Company Number: JPI-P-015939

PATIENT
  Age: 68 Year
  Sex: Female
  Weight: 61.5 kg

DRUGS (35)
  1. TOCOPHEROL (VITAMIN E) (CAPSULES) [Concomitant]
  2. DIMETHYLGLYCINE (DMG) (125 MILLIGRAM, CAPSULES) [Concomitant]
  3. FAMOTIDINE (10 MILLIGRAM/ MILLILITERS) [Concomitant]
  4. AZITHROMYCIN [Suspect]
     Indication: PRODUCT USED FOR UNKNOWN INDICATION
     Dosage: 500 MG (500 MG, 1 IN 1 D)
  5. PROCHLORPERAZINE (TABLETS) [Concomitant]
  6. ONDANSETRON (TABLETS) [Concomitant]
  7. METOPROLOL SUCCINATE (TABLETS) [Concomitant]
  8. FOSAPREPITANT DIMEGLUMINE [Concomitant]
  9. METOCLOPRAMIDE (TABLETS) [Concomitant]
  10. NALTREXONE (TABLETS) [Concomitant]
  11. AMLODIPINE BESYLATE W/BENAZEPRIL HYDROCHLOR. (CAPSULES) [Concomitant]
  12. APPLE CIDER VINEGAR [Concomitant]
  13. CALCIFEROL (VITAMIN D) (CAPSULES) [Concomitant]
  14. CISPLATIN W/MANNITOL [Concomitant]
  15. XYREM [Suspect]
     Indication: CATAPLEXY
     Dosage: 4.5 GM (2.25 GM, 2 IN 1 D), ORAL
     Route: 048
     Dates: start: 20030213, end: 20030101
  16. MELATONIN (TABLETS) [Concomitant]
  17. DEHYDROEPIANDROSTERONE (DHEA) (TABLETS) [Concomitant]
  18. GLYBURIDE W/METFORMIN HYDROCHLORIDE (TABLETS) [Concomitant]
  19. MODAFINIL (TABLETS) [Concomitant]
  20. NIACIN (CAPSULES) [Concomitant]
  21. POST PLATINUM, MAGNESIUM SULFATE, MANNITOL [Concomitant]
  22. UNSPECIFIED CHEMOTHERAPY [Suspect]
     Indication: BLADDER CANCER
     Dates: start: 20120625
  23. BENZONATATE (CAPSULES) [Concomitant]
  24. IRVINGIA (TABLETS) [Concomitant]
  25. FISH OIL (TABLETS) [Concomitant]
  26. PAROXETINE HYDROCHLORIDE [Concomitant]
  27. ASCORBIC ACID (1000 MILLIGRAM, TABLETS) [Concomitant]
  28. IODINE (TABLETS) [Concomitant]
  29. HYDROCHLOROTHIAZIDE W/OLMESARTAN MEDOXOMIL (BENICAR HCT) (TABLETS) [Concomitant]
  30. ALPRAZOLAM [Concomitant]
  31. BENFOTIAMINE (CAPSULES) [Concomitant]
  32. THIAMINE (VITAMIN B1) (TABLETS) [Concomitant]
  33. PALONOSETRON HYDROCHLORIDE [Concomitant]
  34. DEXAMETHASONE [Concomitant]
  35. GEMCITABINE (1000 MILLIGRAM(S) /SQ. METER) [Concomitant]

REACTIONS (6)
  - BLOOD PRESSURE INCREASED [None]
  - NASOPHARYNGITIS [None]
  - CATAPLEXY [None]
  - BLADDER CANCER [None]
  - MYOCARDIAL INFARCTION [None]
  - UPPER-AIRWAY COUGH SYNDROME [None]
